FAERS Safety Report 7008405-X (Version None)
Quarter: 2010Q3

REPORT INFORMATION
  Report Type: 
  Country: None (occurrence: None)
  Receive Date: 20100922
  Receipt Date: 20100916
  Transmission Date: 20110219
  Serious: Yes (Hospitalization)
  Sender: FDA-Public Use
  Company Number: B0674808A

PATIENT
  Sex: Female

DRUGS (1)
  1. AUGMENTIN '125' [Suspect]
     Indication: TOOTH INFECTION
     Dosage: 1G THREE TIMES PER DAY
     Route: 048
     Dates: start: 20100226, end: 20100228

REACTIONS (3)
  - OROPHARYNGEAL BLISTERING [None]
  - PRURITUS [None]
  - RASH MACULO-PAPULAR [None]
